FAERS Safety Report 5861850-8 (Version None)
Quarter: 2008Q3

REPORT INFORMATION
  Report Type: 
  Country: None (occurrence: None)
  Receive Date: 20080827
  Receipt Date: 20080715
  Transmission Date: 20090109
  Serious: No
  Sender: FDA-Public Use
  Company Number: US-ABBOTT-08P-163-0463013-00

PATIENT
  Sex: Female

DRUGS (5)
  1. NIASPAN [Suspect]
     Indication: HIGH DENSITY LIPOPROTEIN DECREASED
     Route: 048
     Dates: start: 20080603, end: 20080715
  2. NIASPAN [Suspect]
     Indication: LOW DENSITY LIPOPROTEIN INCREASED
  3. IBUPROFEN [Suspect]
     Indication: PROPHYLAXIS
     Route: 048
     Dates: start: 20080708, end: 20080708
  4. IBUPROFEN [Suspect]
     Indication: ADVERSE DRUG REACTION
  5. EYE DROPS [Concomitant]
     Indication: GLAUCOMA

REACTIONS (3)
  - BURNING SENSATION [None]
  - PARAESTHESIA [None]
  - SOMNOLENCE [None]
